FAERS Safety Report 9343988 (Version 1)
Quarter: 2013Q2

REPORT INFORMATION
  Report Type: Report from Study
  Country: CL (occurrence: CL)
  Receive Date: 20130612
  Receipt Date: 20130612
  Transmission Date: 20140414
  Serious: Yes (Other)
  Sender: FDA-Public Use
  Company Number: CL-ROCHE-1235212

PATIENT
  Age: 55 Year
  Sex: Male
  Weight: 73 kg

DRUGS (2)
  1. XELODA [Suspect]
     Indication: RECTAL CANCER
     Route: 048
     Dates: start: 20130424
  2. OXALIPLATINO [Suspect]
     Indication: RECTAL CANCER
     Route: 042
     Dates: start: 20130424

REACTIONS (1)
  - Tumour marker increased [Not Recovered/Not Resolved]
